FAERS Safety Report 5068007-1 (Version None)
Quarter: 2006Q3

REPORT INFORMATION
  Report Type: 
  Country: None (occurrence: None)
  Receive Date: 20060731
  Receipt Date: 20060717
  Transmission Date: 20061208
  Serious: Yes (Hospitalization)
  Sender: FDA-Public Use
  Company Number: 2006091214

PATIENT
  Age: 49 Year
  Sex: Female
  Weight: 97.5234 kg

DRUGS (4)
  1. CELEBREX [Suspect]
     Indication: ARTHRITIS
     Dosage: 200 MG (200 MG, 1 IN 1 D)
     Dates: end: 20010101
  2. GLUCOVANCE [Concomitant]
  3. PRAVACHOL [Concomitant]
  4. ZETIA [Concomitant]

REACTIONS (1)
  - ATRIOVENTRICULAR BLOCK [None]
